FAERS Safety Report 18440356 (Version 1)
Quarter: 2020Q4

REPORT INFORMATION
  Report Type: Spontaneous
  Country: US (occurrence: US)
  Receive Date: 20201029
  Receipt Date: 20201029
  Transmission Date: 20210114
  Serious: No
  Sender: FDA-Public Use
  Company Number: None

PATIENT
  Age: 44 Year
  Sex: Female
  Weight: 171 kg

DRUGS (1)
  1. ORITAVANCIN. [Suspect]
     Active Substance: ORITAVANCIN

REACTIONS (1)
  - Pruritus [None]
